FAERS Safety Report 8405737-5 (Version None)
Quarter: 2012Q2

REPORT INFORMATION
  Report Type: 
  Country: None (occurrence: None)
  Receive Date: 20120523
  Receipt Date: 20111027
  Transmission Date: 20120825
  Serious: Yes (Hospitalization, Other)
  Sender: FDA-Public Use
  Company Number: 163-21880-11052531

PATIENT
  Age: 70 Year
  Sex: Male

DRUGS (9)
  1. FINASTERIDE [Concomitant]
  2. SIMVASTATIN [Concomitant]
  3. REVLIMID [Suspect]
     Indication: MULTIPLE MYELOMA
     Dosage: 25 MG, 1 IN 1 D, PO, 25 MG, QD X21 DAYS, PO, 14 MG, FOR 14 DAYS A MONTH, PO
     Route: 048
     Dates: start: 20100820
  4. REVLIMID [Suspect]
     Indication: MULTIPLE MYELOMA
     Dosage: 25 MG, 1 IN 1 D, PO, 25 MG, QD X21 DAYS, PO, 14 MG, FOR 14 DAYS A MONTH, PO
     Route: 048
     Dates: start: 20110507, end: 20110527
  5. PREDNISONE TAB [Concomitant]
  6. LISINOPRIL [Concomitant]
  7. DEXAMETHASONE [Concomitant]
  8. LOVENOX [Concomitant]
  9. METOPROLOL TARTRATE [Concomitant]

REACTIONS (5)
  - CHRONIC OBSTRUCTIVE PULMONARY DISEASE [None]
  - TOOTHACHE [None]
  - PLATELET COUNT DECREASED [None]
  - CARDIAC FAILURE CONGESTIVE [None]
  - DIARRHOEA [None]
